FAERS Safety Report 13390830 (Version 3)
Quarter: 2020Q3

REPORT INFORMATION
  Report Type: Other
  Country: ES (occurrence: ES)
  Receive Date: 20170331
  Receipt Date: 20200910
  Transmission Date: 20201102
  Serious: Yes (Life-Threatening, Hospitalization)
  Sender: FDA-Public Use
  Company Number: ES-ROCHE-1912988

PATIENT
  Age: 50 Year
  Sex: Female
  Weight: 84 kg

DRUGS (4)
  1. ETORICOXIB. [Concomitant]
     Active Substance: ETORICOXIB
  2. TOCILIZUMAB. [Suspect]
     Active Substance: TOCILIZUMAB
     Indication: RHEUMATOID ARTHRITIS
     Route: 058
     Dates: start: 20150630, end: 20161214
  3. ATORVASTATINA [Concomitant]
     Active Substance: ATORVASTATIN
     Route: 065
  4. OMEPRAZOLE. [Concomitant]
     Active Substance: OMEPRAZOLE

REACTIONS (3)
  - Gastrointestinal haemorrhage [Recovered/Resolved]
  - Duodenal perforation [Recovered/Resolved]
  - Hypovolaemic shock [Recovered/Resolved]

NARRATIVE: CASE EVENT DATE: 20161221
